FAERS Safety Report 14537502 (Version 1)
Quarter: 2018Q1

REPORT INFORMATION
  Report Type: Spontaneous
  Country: US (occurrence: US)
  Receive Date: 20180215
  Receipt Date: 20180215
  Transmission Date: 20180509
  Serious: No
  Sender: FDA-Public Use
  Company Number: US-009507513-1802USA006603

PATIENT
  Sex: Male

DRUGS (1)
  1. SIMVASTATIN TABLETS, USP [Suspect]
     Active Substance: SIMVASTATIN
     Dosage: 20 MG, ONCE DAILY
     Route: 048

REACTIONS (3)
  - Product availability issue [Unknown]
  - Drug dose omission [Unknown]
  - No adverse event [Unknown]
